FAERS Safety Report 12059099 (Version 1)
Quarter: 2016Q1

REPORT INFORMATION
  Report Type: Spontaneous
  Country: GB (occurrence: GB)
  Receive Date: 20160210
  Receipt Date: 20160210
  Transmission Date: 20160526
  Serious: Yes (Other)
  Sender: FDA-Public Use
  Company Number: PHHY2016GB015677

PATIENT
  Age: 18 Year
  Sex: Male

DRUGS (2)
  1. IMATINIB [Suspect]
     Active Substance: IMATINIB
     Indication: CHRONIC MYELOID LEUKAEMIA
     Dosage: 400 MG, QD
     Route: 065
  2. IMATINIB [Suspect]
     Active Substance: IMATINIB
     Dosage: 400 MG, QD
     Route: 065

REACTIONS (11)
  - Abdominal pain lower [Unknown]
  - Therapeutic response decreased [Unknown]
  - Glomerulonephritis [Unknown]
  - Ascites [Unknown]
  - Cryoglobulinaemia [Unknown]
  - Blood albumin decreased [Unknown]
  - Leukocyturia [Unknown]
  - Nephrotic syndrome [Unknown]
  - Protein total [Unknown]
  - Haematuria [Unknown]
  - Renal vein thrombosis [Unknown]
